FAERS Safety Report 6506919-X (Version None)
Quarter: 2009Q4

REPORT INFORMATION
  Report Type: 
  Country: None (occurrence: None)
  Receive Date: 20091221
  Receipt Date: 20091211
  Transmission Date: 20100525
  Serious: Yes (Other)
  Sender: FDA-Public Use
  Company Number: US-ELI_LILLY_AND_COMPANY-US200912003094

PATIENT
  Sex: Female

DRUGS (10)
  1. HUMATROPE [Suspect]
     Indication: GROWTH HORMONE DEFICIENCY
     Dosage: 6 MG, DAILY (1/D)
     Dates: start: 20000101
  2. HYDROCORTISONE [Concomitant]
     Dosage: UNK, UNKNOWN
  3. LEVOXYL [Concomitant]
     Dosage: UNK, UNKNOWN
  4. TOPAMAX [Concomitant]
     Dosage: UNK, UNKNOWN
  5. TRILEPTAL [Concomitant]
     Dosage: UNK, UNKNOWN
  6. LYRICA [Concomitant]
     Dosage: UNK, UNKNOWN
  7. CYCLOBENZAPRINE HCL [Concomitant]
     Dosage: UNK, UNKNOWN
  8. DESVENLAFAXINE [Concomitant]
     Dosage: UNK, UNKNOWN
  9. MIRTAZAPINE [Concomitant]
     Dosage: UNK, UNKNOWN
  10. OTHER HORMONES [Concomitant]
     Dosage: UNK, UNKNOWN

REACTIONS (3)
  - PITUITARY TUMOUR RECURRENT [None]
  - ROAD TRAFFIC ACCIDENT [None]
  - UPPER LIMB FRACTURE [None]
